FAERS Safety Report 12364018 (Version 1)
Quarter: 2016Q2

REPORT INFORMATION
  Report Type: Spontaneous
  Country: US (occurrence: US)
  Receive Date: 20160512
  Receipt Date: 20160512
  Transmission Date: 20160815
  Serious: No
  Sender: FDA-Public Use
  Company Number: US-MDT-ADR-2016-00035

PATIENT
  Age: 38 Year
  Sex: Male

DRUGS (1)
  1. BACLOFEN. [Suspect]
     Active Substance: BACLOFEN
     Route: 037

REACTIONS (4)
  - Pain [Recovered/Resolved]
  - Therapeutic response decreased [Recovered/Resolved]
  - Gait disturbance [Recovered/Resolved]
  - Aggression [Recovered/Resolved]
